FAERS Safety Report 5136982-2 (Version None)
Quarter: 2006Q4

REPORT INFORMATION
  Report Type: 
  Country: None (occurrence: None)
  Receive Date: 20061030
  Receipt Date: 20061019
  Transmission Date: 20070319
  Serious: Yes (Death)
  Sender: FDA-Public Use
  Company Number: US-JNJFOC-20061004352

PATIENT
  Sex: Female

DRUGS (19)
  1. INFLIXIMAB [Suspect]
     Indication: RHEUMATOID ARTHRITIS
     Route: 042
  2. ALBUTEROL [Concomitant]
  3. ASACOL [Concomitant]
  4. BECONASE [Concomitant]
  5. BENADRYL [Concomitant]
  6. FUROSEMIDE [Concomitant]
  7. GUAIFENISEN [Concomitant]
  8. LODINE [Concomitant]
  9. NYSTATIN [Concomitant]
  10. PLAQUENIL [Concomitant]
  11. SINGULAIR [Concomitant]
  12. PREVACID [Concomitant]
  13. DIAZEPAM [Concomitant]
     Dosage: 3 TABS DAILY
  14. PROMETHAZINE [Concomitant]
  15. METHOTREXATE SODIUM [Concomitant]
  16. PREMARIN [Concomitant]
  17. DONNATAL [Concomitant]
     Dosage: 1-2 TABLETS DAILY
  18. CALCIUM GLUCONATE [Concomitant]
  19. OXYGEN [Concomitant]

REACTIONS (1)
  - SYSTEMIC LUPUS ERYTHEMATOSUS [None]
